FAERS Safety Report 7523657-5 (Version None)
Quarter: 2011Q2

REPORT INFORMATION
  Report Type: 
  Country: None (occurrence: None)
  Receive Date: 20110603
  Receipt Date: 20110527
  Transmission Date: 20111010
  Serious: Yes (Life-Threatening, Hospitalization)
  Sender: FDA-Public Use
  Company Number: FR-ROCHE-764845

PATIENT
  Sex: Female
  Weight: 53 kg

DRUGS (10)
  1. FUMAFER [Concomitant]
     Dosage: FREQUENCY:DAILY
     Route: 048
  2. AVASTIN [Suspect]
     Indication: METASTASIS
     Route: 042
     Dates: start: 20100701, end: 20110301
  3. TAXOTERE [Concomitant]
  4. EFFEXOR XR [Concomitant]
     Dosage: FREQUENCY:DAILY.DRUG REPORTED AS EFFEXOR LP 37.5
     Dates: start: 20100901
  5. FEMARA [Concomitant]
     Dosage: FREQUENCY:DAILY
     Route: 048
     Dates: start: 20110101
  6. TAXOL [Concomitant]
     Dates: start: 20100701, end: 20101201
  7. ZOMETA [Concomitant]
     Dates: start: 20100701
  8. ZITHROMAX [Concomitant]
     Indication: INFECTION PROPHYLAXIS
     Dosage: FREQUENCY:DAILY
     Route: 048
     Dates: start: 20080101
  9. IMMUNE GLOBULIN INTRAVENOUS (HUMAN) [Concomitant]
     Indication: IMMUNODEFICIENCY
     Dosage: FREQUENCY:EVERY 10 DAYS, START DATE:MORE THAN 5 YEARS, DRUG REPORTED AS GAMMANORM
     Route: 058
  10. AVASTIN [Suspect]
     Route: 065

REACTIONS (4)
  - VOMITING [None]
  - EPILEPSY [None]
  - CONVULSION [None]
  - HEADACHE [None]
